FAERS Safety Report 20203197 (Version 2)
Quarter: 2021Q4

REPORT INFORMATION
  Report Type: Report from Study
  Country: DE (occurrence: DE)
  Receive Date: 20211218
  Receipt Date: 20211230
  Transmission Date: 20220303
  Serious: Yes (Hospitalization, Other)
  Sender: FDA-Public Use
  Company Number: DE-NOVARTISPH-NVSC2021DE265500

PATIENT
  Sex: Female

DRUGS (3)
  1. KISQALI [Suspect]
     Active Substance: RIBOCICLIB
     Indication: Breast cancer metastatic
     Dosage: 600 MG, QD (SCHEMA 21 DAYS INTAKE, THAN 7 DAYS PAUSE)
     Route: 048
     Dates: start: 20201128
  2. FULVESTRANT [Suspect]
     Active Substance: FULVESTRANT
     Indication: Breast cancer metastatic
     Dosage: 500 MG, BIW (EVERY 2 WEEKS)
     Route: 030
     Dates: start: 20201113, end: 20201126
  3. FULVESTRANT [Suspect]
     Active Substance: FULVESTRANT
     Dosage: 500 MG, DAILY DOSE (EVERY 4 WEEKS)
     Route: 030
     Dates: start: 20201127

REACTIONS (7)
  - Malignant pleural effusion [Recovered/Resolved]
  - Dyspnoea [Recovered/Resolved]
  - Malignant pleural effusion [Recovered/Resolved]
  - Dyspnoea [Recovered/Resolved]
  - Neutropenia [Recovered/Resolved]
  - Leukopenia [Recovered/Resolved]
  - Pleural neoplasm [Not Recovered/Not Resolved]

NARRATIVE: CASE EVENT DATE: 20210910
